FAERS Safety Report 15239543 (Version 1)
Quarter: 2018Q4

REPORT INFORMATION
  Report Type: Spontaneous
  Country: JP (occurrence: JP)
  Receive Date: 20180803
  Receipt Date: 20180803
  Transmission Date: 20190204
  Serious: Yes (Hospitalization, Other)
  Sender: FDA-Public Use
  Company Number: JP-OTSUKA-2018_019028

PATIENT
  Age: 77 Year
  Sex: Male

DRUGS (1)
  1. LEPETAN 0.4 MG SUPPOSITORY [Suspect]
     Active Substance: BUPRENORPHINE HYDROCHLORIDE
     Indication: CANCER PAIN
     Dosage: 0.4 MG, QD
     Route: 054
     Dates: start: 20180619

REACTIONS (4)
  - Neoplasm malignant [Unknown]
  - Inappropriate schedule of product administration [Unknown]
  - Defaecation urgency [Unknown]
  - Condition aggravated [Unknown]

NARRATIVE: CASE EVENT DATE: 2018
